FAERS Safety Report 5011213-2 (Version None)
Quarter: 2006Q2

REPORT INFORMATION
  Report Type: 
  Country: None (occurrence: None)
  Receive Date: 20060404
  Receipt Date: 20060116
  Transmission Date: 20061013
  Serious: No
  Sender: FDA-Public Use
  Company Number: US200601002613

PATIENT
  Age: 40 Year
  Sex: Male

DRUGS (6)
  1. CYMBALTA [Suspect]
     Indication: BACK PAIN
     Dosage: 30 MG, ORAL
     Route: 048
     Dates: start: 20060102, end: 20060101
  2. OXYCONTIN [Concomitant]
  3. LORTAB [Concomitant]
  4. CARISOPRODOL [Concomitant]
  5. ATENOLOL [Concomitant]
  6. BENICAR /USA/ (OLMESARTAN MEDOXOMIL) [Concomitant]

REACTIONS (7)
  - BACK PAIN [None]
  - DIARRHOEA [None]
  - FEELING ABNORMAL [None]
  - INSOMNIA [None]
  - MALAISE [None]
  - RETCHING [None]
  - VOMITING [None]
